FAERS Safety Report 8540409-8 (Version None)
Quarter: 2012Q3

REPORT INFORMATION
  Report Type: 
  Country: None (occurrence: None)
  Receive Date: 20120726
  Receipt Date: 20120130
  Transmission Date: 20120928
  Serious: No
  Sender: FDA-Public Use
  Company Number: US-ASTRAZENECA-2011SE27827

PATIENT
  Age: 60 Year
  Sex: Male

DRUGS (5)
  1. AMITRIPTYLINE HYDROCHLORIDE [Concomitant]
  2. CLONIDINE [Concomitant]
  3. HYDROCHLOROTHIAZIDE [Concomitant]
  4. SEROQUEL [Suspect]
     Indication: BIPOLAR DISORDER
     Route: 048
     Dates: start: 20100101
  5. ATENOLOL [Concomitant]

REACTIONS (9)
  - PARAESTHESIA [None]
  - DRUG WITHDRAWAL SYNDROME [None]
  - INITIAL INSOMNIA [None]
  - DRUG DOSE OMISSION [None]
  - NIGHTMARE [None]
  - HEART RATE INCREASED [None]
  - WEIGHT INCREASED [None]
  - BLOOD PRESSURE INCREASED [None]
  - INSOMNIA [None]
